FAERS Safety Report 21925709 (Version 1)
Quarter: 2023Q1

REPORT INFORMATION
  Report Type: Spontaneous
  Country: US (occurrence: US)
  Receive Date: 20230130
  Receipt Date: 20230130
  Transmission Date: 20230418
  Serious: No
  Sender: FDA-Public Use
  Company Number: US-PFIZER INC-202300038198

PATIENT
  Age: 34 Year
  Sex: Female

DRUGS (1)
  1. PAXLOVID [Suspect]
     Active Substance: NIRMATRELVIR\RITONAVIR
     Indication: COVID-19 treatment
     Dosage: UNK
     Dates: start: 20230113, end: 20230119

REACTIONS (6)
  - Inappropriate schedule of product administration [Unknown]
  - Dysgeusia [Unknown]
  - Somnolence [Unknown]
  - Diarrhoea [Unknown]
  - Flatulence [Unknown]
  - Dry mouth [Unknown]

NARRATIVE: CASE EVENT DATE: 20230113
